FAERS Safety Report 8946444 (Version 3)
Quarter: 2016Q2

REPORT INFORMATION
  Report Type: Report from Study
  Country: US (occurrence: US)
  Receive Date: 20121204
  Receipt Date: 20160411
  Transmission Date: 20160815
  Serious: No
  Sender: FDA-Public Use
  Company Number: US-AMGEN-USASP2012072122

PATIENT
  Age: 61 Year
  Sex: Male

DRUGS (1)
  1. ENBREL [Suspect]
     Active Substance: ETANERCEPT
     Indication: RHEUMATOID ARTHRITIS
     Dosage: 50 MG, QWK
     Route: 065
     Dates: start: 199906

REACTIONS (4)
  - Meniscus injury [Not Recovered/Not Resolved]
  - Spinal operation [Unknown]
  - Retirement [Not Recovered/Not Resolved]
  - Lower limb fracture [Unknown]

NARRATIVE: CASE EVENT DATE: 20121018
